FAERS Safety Report 8510142-7 (Version None)
Quarter: 2012Q3

REPORT INFORMATION
  Report Type: 
  Country: None (occurrence: None)
  Receive Date: 20120713
  Receipt Date: 20120711
  Transmission Date: 20120928
  Serious: Yes (Hospitalization)
  Sender: FDA-Public Use
  Company Number: GB-ROCHE-1087345

PATIENT
  Age: 38 Year
  Sex: Female

DRUGS (13)
  1. FOLIC ACID [Concomitant]
  2. RITUXIMAB [Suspect]
     Route: 042
     Dates: start: 20110621
  3. HYDROXYCHLOROQUINE SULFATE [Concomitant]
  4. OMEPRAZOLE [Concomitant]
  5. AMITRIPTYLINE HCL [Concomitant]
  6. GABAPENTIN [Concomitant]
  7. BUTRANS [Concomitant]
  8. PYRIDOSTIGMINE BROMIDE [Concomitant]
  9. RITUXIMAB [Suspect]
     Indication: PRODUCT USED FOR UNKNOWN INDICATION
     Route: 042
     Dates: start: 20110601
  10. CALCICHEW D3 [Concomitant]
  11. FERROUS FUMARATE [Concomitant]
  12. METHOTREXATE [Concomitant]
  13. PREDNISOLONE [Concomitant]

REACTIONS (5)
  - SUPRAPUBIC PAIN [None]
  - UROSEPSIS [None]
  - BACK PAIN [None]
  - ESCHERICHIA INFECTION [None]
  - PYREXIA [None]
